FAERS Safety Report 20328870 (Version 1)
Quarter: 2022Q1

REPORT INFORMATION
  Report Type: Spontaneous
  Country: US (occurrence: None)
  Receive Date: 20220112
  Receipt Date: 20220112
  Transmission Date: 20220423
  Serious: Yes (Hospitalization, Other)
  Sender: FDA-Public Use
  Company Number: None

PATIENT
  Age: 35 Year
  Sex: Female
  Weight: 56.25 kg

DRUGS (12)
  1. TRINTELLIX [Suspect]
     Active Substance: VORTIOXETINE HYDROBROMIDE
     Indication: Antidepressant therapy
     Dosage: FREQUENCY : AT BEDTIME;?
     Route: 048
  2. VYVANSE [Concomitant]
     Active Substance: LISDEXAMFETAMINE DIMESYLATE
  3. ATARAX [Concomitant]
     Active Substance: HYDROXYZINE HYDROCHLORIDE
  4. CLONAZEPAM [Concomitant]
     Active Substance: CLONAZEPAM
  5. FLONASE [Concomitant]
     Active Substance: FLUTICASONE PROPIONATE
  6. ZOFRAN [Concomitant]
     Active Substance: ONDANSETRON HYDROCHLORIDE
  7. VITAMIN D [Concomitant]
     Active Substance: VITAMIN D NOS
  8. ALLERGY EYE DROPS [Concomitant]
     Active Substance: NAPHAZOLINE HYDROCHLORIDE\PHENIRAMINE MALEATE
  9. TYLENOL [Concomitant]
     Active Substance: ACETAMINOPHEN
  10. EMETROL [Concomitant]
     Active Substance: DEXTROSE\FRUCTOSE\PHOSPHORIC ACID
  11. BONINE GINGER [Concomitant]
  12. PEPCID AC [Concomitant]
     Active Substance: FAMOTIDINE

REACTIONS (7)
  - Pruritus [None]
  - Pruritus [None]
  - Pruritus [None]
  - Pruritus [None]
  - Suicidal ideation [None]
  - Patient dissatisfaction with treatment [None]
  - Therapy interrupted [None]

NARRATIVE: CASE EVENT DATE: 20211125
